FAERS Safety Report 4731589-0 (Version None)
Quarter: 2005Q3

REPORT INFORMATION
  Report Type: 
  Country: None (occurrence: None)
  Receive Date: 20050719
  Receipt Date: 20050201
  Transmission Date: 20060218
  Serious: Yes (Hospitalization)
  Sender: FDA-Public Use
  Company Number: 2005BI002341

PATIENT
  Age: 51 Year
  Sex: Male
  Weight: 70.3075 kg

DRUGS (6)
  1. AVONEX [Suspect]
     Indication: MULTIPLE SCLEROSIS
     Dosage: 30 UG;QW;IM
     Route: 030
     Dates: start: 20030101
  2. AMBIEN [Concomitant]
  3. BACLOFEN [Concomitant]
  4. ZOLOFT [Concomitant]
  5. TYLENOL (CAPLET) [Concomitant]
  6. ADVIL [Concomitant]

REACTIONS (1)
  - MULTIPLE SCLEROSIS RELAPSE [None]
